FAERS Safety Report 6827128-0 (Version None)
Quarter: 2010Q3

REPORT INFORMATION
  Report Type: 
  Country: None (occurrence: None)
  Receive Date: 20100709
  Receipt Date: 20100707
  Transmission Date: 20110219
  Serious: Yes (Other)
  Sender: FDA-Public Use
  Company Number: US-BRISTOL-MYERS SQUIBB COMPANY-15125271

PATIENT
  Age: 13 Month
  Sex: Male
  Weight: 9 kg

DRUGS (5)
  1. ATAZANAVIR [Suspect]
     Indication: HIV INFECTION
     Dosage: INTERRUPTED ON 18MAY10
     Route: 048
     Dates: start: 20090817
  2. RITONAVIR [Suspect]
     Indication: HIV INFECTION
     Dosage: INTERUPTED ON 18MAY2010
     Route: 048
     Dates: start: 20090817
  3. EPIVIR [Concomitant]
  4. ZIDOVUDINE [Concomitant]
  5. ERGOCALCIFEROL [Concomitant]

REACTIONS (1)
  - BLOOD ALKALINE PHOSPHATASE INCREASED [None]
